FAERS Safety Report 23495613 (Version 1)
Quarter: 2024Q1

REPORT INFORMATION
  Report Type: Spontaneous
  Country: ID (occurrence: ID)
  Receive Date: 20240207
  Receipt Date: 20240207
  Transmission Date: 20240409
  Serious: Yes (Other)
  Sender: FDA-Public Use
  Company Number: ID-SCIGEN-2024SCI000007

PATIENT
  Age: 82 Year
  Sex: Female

DRUGS (1)
  1. ZOMETA [Suspect]
     Active Substance: ZOLEDRONIC ACID
     Indication: Prophylaxis
     Dosage: 40 UNK, QMO (4MG/100ML)
     Route: 042
     Dates: start: 202302

REACTIONS (3)
  - Carbohydrate antigen 15-3 increased [Unknown]
  - Carbohydrate antigen 125 increased [Unknown]
  - Haemorrhage [Recovering/Resolving]
